FAERS Safety Report 9162933 (Version 1)
Quarter: 2013Q1

REPORT INFORMATION
  Report Type: Spontaneous
  Country: DK (occurrence: ZA)
  Receive Date: 20130314
  Receipt Date: 20130314
  Transmission Date: 20140127
  Serious: Yes (Other)
  Sender: FDA-Public Use
  Company Number: ZA-FRI-1000043364

PATIENT
  Sex: Female
  Weight: 90 kg

DRUGS (4)
  1. ESCITALOPRAM [Suspect]
     Indication: DEPRESSION
     Dosage: 20 MG
     Route: 048
     Dates: start: 200705
  2. YASMIN [Concomitant]
     Indication: CONTRACEPTION
     Route: 048
     Dates: start: 2007, end: 201210
  3. TREPILINE [Concomitant]
     Indication: ABDOMINAL PAIN
     Dosage: 20 MG
     Route: 048
     Dates: start: 200702, end: 201210
  4. STILPANE [Concomitant]
     Indication: ABDOMINAL PAIN
     Route: 048
     Dates: start: 201110

REACTIONS (1)
  - Cushing^s syndrome [Not Recovered/Not Resolved]
